FAERS Safety Report 5472536-6 (Version None)
Quarter: 2007Q3

REPORT INFORMATION
  Report Type: 
  Country: None (occurrence: None)
  Receive Date: 20070926
  Receipt Date: 20070913
  Transmission Date: 20080115
  Serious: Yes (Hospitalization)
  Sender: FDA-Public Use
  Company Number: 2006JP004920

PATIENT
  Age: 45 Year
  Sex: 0

DRUGS (2)
  1. PROGRAF [Suspect]
     Indication: MYASTHENIA GRAVIS
     Dosage: 4 MG, D, ORAL
     Route: 048
     Dates: start: 20050501
  2. PREDNISOLONE [Suspect]
     Dosage: 45 MG, QOD, ORAL 1.4 MG  D ORAL
     Route: 048

REACTIONS (4)
  - COUGH [None]
  - ERYTHRODERMIC PSORIASIS [None]
  - GRAFT VERSUS HOST DISEASE [None]
  - STAPHYLOCOCCAL INFECTION [None]
